FAERS Safety Report 14070058 (Version 5)
Quarter: 2017Q4

REPORT INFORMATION
  Report Type: Spontaneous
  Country: US (occurrence: US)
  Receive Date: 20171010
  Receipt Date: 20171220
  Transmission Date: 20180321
  Serious: Yes (Other)
  Sender: FDA-Public Use
  Company Number: US-IMPAX LABORATORIES, INC-2017-IPXL-02830

PATIENT
  Sex: Male
  Weight: 59 kg

DRUGS (5)
  1. SINEMET [Concomitant]
     Active Substance: CARBIDOPA\LEVODOPA
     Indication: PRODUCT USED FOR UNKNOWN INDICATION
     Dosage: 25/100MG, 4 TIMES A DAY
     Route: 065
  2. RYTARY [Suspect]
     Active Substance: CARBIDOPA\LEVODOPA
     Dosage: 61.25 /245MG, 2 DF, DAILY
     Route: 048
  3. RYTARY [Suspect]
     Active Substance: CARBIDOPA\LEVODOPA
     Dosage: ONE CAPSULE 61.25 MG/245 MG AND 48.75/195 MG 4 TIMES A DAY
     Route: 048
     Dates: start: 2017
  4. RYTARY [Suspect]
     Active Substance: CARBIDOPA\LEVODOPA
     Dosage: 61.25 /245 MG, 2 CAPSULES, 4 TIMES A DAY
     Route: 048
  5. RYTARY [Suspect]
     Active Substance: CARBIDOPA\LEVODOPA
     Indication: PARKINSON^S DISEASE
     Dosage: ONE CAPSULE OF 23.75/95 MG AND 1 CAPSULE OF 61.25/245 MG, FOUR TIMES DAILY
     Route: 048

REACTIONS (5)
  - Laceration [Recovered/Resolved]
  - Fall [Not Recovered/Not Resolved]
  - Drug effect incomplete [Unknown]
  - Dyskinesia [Not Recovered/Not Resolved]
  - Muscle rupture [Recovered/Resolved]

NARRATIVE: CASE EVENT DATE: 2017
